FAERS Safety Report 7867836-6 (Version None)
Quarter: 2011Q4

REPORT INFORMATION
  Report Type: 
  Country: None (occurrence: None)
  Receive Date: 20111028
  Receipt Date: 20111020
  Transmission Date: 20120403
  Serious: Yes (Hospitalization)
  Sender: FDA-Public Use
  Company Number: US-CELGENEUS-163-21880-11102543

PATIENT
  Sex: Male

DRUGS (6)
  1. TAMSULOSIN HCL [Concomitant]
     Route: 065
  2. REVLIMID [Suspect]
     Indication: MULTIPLE MYELOMA
     Dosage: 5 MILLIGRAM
     Route: 048
     Dates: start: 20110930, end: 20111011
  3. SIMVASTATIN [Concomitant]
     Route: 065
  4. OLMESARTAN MEDOXOMIL [Concomitant]
     Route: 065
  5. MULTI-VITAMINS [Concomitant]
     Route: 065
  6. FOLIC ACID [Concomitant]
     Route: 065

REACTIONS (1)
  - ABDOMINAL DISTENSION [None]
